FAERS Safety Report 4917399-X (Version None)
Quarter: 2006Q1

REPORT INFORMATION
  Report Type: 
  Country: None (occurrence: None)
  Receive Date: 20060221
  Receipt Date: 20060209
  Transmission Date: 20060701
  Serious: Yes (Life-Threatening)
  Sender: FDA-Public Use
  Company Number: FR-GLAXOSMITHKLINE-B0412750A

PATIENT
  Age: 49 Year
  Sex: Male
  Weight: 117 kg

DRUGS (1)
  1. AUGMENTIN '125' [Suspect]
     Route: 048
     Dates: start: 20041101, end: 20041101

REACTIONS (5)
  - CIRCULATORY COLLAPSE [None]
  - DRUG HYPERSENSITIVITY [None]
  - DYSPNOEA [None]
  - RESPIRATORY ARREST [None]
  - RHINITIS [None]
